FAERS Safety Report 9847753 (Version 1)
Quarter: 2014Q1

REPORT INFORMATION
  Report Type: Spontaneous
  Country: US (occurrence: US)
  Receive Date: 20140128
  Receipt Date: 20140128
  Transmission Date: 20141002
  Serious: No
  Sender: FDA-Public Use
  Company Number: US-B.I. PHARMACEUTICALS,INC./RIDGEFIELD-2014-BI-02001BP

PATIENT
  Age: 69 Year
  Sex: Male
  Weight: 93 kg

DRUGS (5)
  1. MICARDIS HCT [Suspect]
     Indication: HYPERTENSION
     Dosage: STRENGTH: 80 MG / 25 MG; DAILY DOSE: 80/25 MG
     Route: 048
     Dates: start: 2009
  2. DOXEPIN [Concomitant]
     Indication: INSOMNIA
     Dosage: 10 MG
     Route: 048
     Dates: start: 2010
  3. PLAVIX [Concomitant]
     Indication: CEREBROVASCULAR ACCIDENT PROPHYLAXIS
     Dosage: 75 MG
     Route: 048
     Dates: start: 201211
  4. VERAPAMIL [Concomitant]
     Indication: HYPERTENSION
     Dosage: 630 MG
     Route: 048
     Dates: start: 2009
  5. BACTRIM [Concomitant]
     Indication: URINARY TRACT INFECTION
     Dosage: 240 MG
     Route: 048
     Dates: start: 2013

REACTIONS (1)
  - Hypertension [Not Recovered/Not Resolved]
